FAERS Safety Report 7017936-8 (Version None)
Quarter: 2010Q3

REPORT INFORMATION
  Report Type: 
  Country: None (occurrence: None)
  Receive Date: 20100922
  Receipt Date: 20100914
  Transmission Date: 20110219
  Serious: Yes (Hospitalization)
  Sender: FDA-Public Use
  Company Number: 018749

PATIENT
  Sex: Male

DRUGS (4)
  1. KEPPRA [Suspect]
     Indication: CONVULSION
     Dosage: (500 MG, BID)
     Dates: start: 20050101
  2. CARBAMAZEPINE [Concomitant]
  3. LYRICA [Concomitant]
  4. VALORON [Concomitant]

REACTIONS (3)
  - AGGRESSION [None]
  - DEMENTIA [None]
  - PSYCHOTIC DISORDER [None]
